FAERS Safety Report 16697944 (Version 8)
Quarter: 2022Q4

REPORT INFORMATION
  Report Type: Report from Study
  Country: JP (occurrence: JP)
  Receive Date: 20190813
  Receipt Date: 20221010
  Transmission Date: 20230113
  Serious: Yes (Life-Threatening, Hospitalization, Other)
  Sender: FDA-Public Use
  Company Number: JP-PFIZER INC-2019341728

PATIENT
  Age: 76 Year
  Sex: Female

DRUGS (17)
  1. VYNDAQEL [Suspect]
     Active Substance: TAFAMIDIS MEGLUMINE
     Indication: Hereditary neuropathic amyloidosis
     Dosage: 20 MG, 1X/DAY
     Route: 048
     Dates: start: 20170711
  2. AMITIZA [Suspect]
     Active Substance: LUBIPROSTONE
     Indication: Constipation
     Dosage: 24 UG, 2X/DAY
     Route: 048
     Dates: start: 20150611
  3. LINZESS [Suspect]
     Active Substance: LINACLOTIDE
     Indication: Constipation
     Dosage: 0.5 MG, 1X/DAY
     Route: 048
     Dates: start: 20181001, end: 20190908
  4. TELMISARTAN [Concomitant]
     Active Substance: TELMISARTAN
     Dosage: 40 MG, 1X/DAY
     Route: 048
     Dates: end: 20190512
  5. TELMISARTAN [Concomitant]
     Active Substance: TELMISARTAN
     Dosage: 20 MG, 1X/DAY
     Route: 048
     Dates: start: 20190513, end: 20190805
  6. SENNOSIDES [Concomitant]
     Active Substance: SENNOSIDES
     Dosage: 12 MG, AS NEEDED
     Route: 048
  7. SENNOSIDES [Concomitant]
     Active Substance: SENNOSIDES
     Dosage: 24 MG, AS NEEDED
     Route: 048
  8. NEUMETHYCOLE [Concomitant]
     Dosage: 500 UG, 3X/DAY
     Route: 048
     Dates: start: 20170330, end: 20200511
  9. WARFARIN [Concomitant]
     Active Substance: WARFARIN
     Dosage: 1 MG, 1X/DAY
     Route: 048
     Dates: start: 20190513, end: 20190609
  10. WARFARIN [Concomitant]
     Active Substance: WARFARIN
     Dosage: 1.5 MG, 1X/DAY
     Route: 048
     Dates: start: 20190610, end: 20190804
  11. WARFARIN [Concomitant]
     Active Substance: WARFARIN
     Dosage: 1 MG, 1X/DAY
     Route: 048
     Dates: start: 20190805, end: 20190908
  12. WARFARIN [Concomitant]
     Active Substance: WARFARIN
     Dosage: 1.5 MG, 1X/DAY
     Route: 048
     Dates: start: 20190909, end: 20190929
  13. WARFARIN [Concomitant]
     Active Substance: WARFARIN
     Dosage: 0.5 MG, 1X/DAY
     Route: 048
     Dates: start: 20190930
  14. METHYLCOBALAMIN [Concomitant]
     Active Substance: METHYLCOBALAMIN
     Dosage: 500 UG, 3X/DAY
     Dates: end: 20200511
  15. TOCOPHERYL NICOTINATE, D-.ALPHA. [Concomitant]
     Active Substance: TOCOPHERYL NICOTINATE, D-.ALPHA.
     Dosage: 100 MG, 3X/DAY
     Route: 048
     Dates: start: 20170330, end: 20200511
  16. MIYA-BM [Concomitant]
     Active Substance: CLOSTRIDIUM BUTYRICUM SPORES STRAIN M-55
     Dosage: UNK UNK, 3X/DAY
     Route: 048
     Dates: start: 20170904, end: 20180625
  17. REBAMIPIDE [Concomitant]
     Active Substance: REBAMIPIDE

REACTIONS (1)
  - Thrombocytopenia [Recovered/Resolved]

NARRATIVE: CASE EVENT DATE: 20190708
